FAERS Safety Report 16062780 (Version 1)
Quarter: 2019Q1

REPORT INFORMATION
  Report Type: Spontaneous
  Country: US (occurrence: US)
  Receive Date: 20190312
  Receipt Date: 20190312
  Transmission Date: 20190418
  Serious: Yes (Hospitalization, Other)
  Sender: FDA-Public Use
  Company Number: US-ASTRAZENECA-2019SE37740

PATIENT
  Age: 74 Year
  Sex: Female
  Weight: 42.6 kg

DRUGS (1)
  1. SYMBICORT [Suspect]
     Active Substance: BUDESONIDE\FORMOTEROL FUMARATE DIHYDRATE
     Dosage: 80/4.5 MCG 2 PUFFS TWICE PER DAY
     Route: 039
     Dates: start: 2018

REACTIONS (7)
  - Pleural effusion [Unknown]
  - Hypotension [Unknown]
  - Product dose omission [Unknown]
  - Blood gases abnormal [Unknown]
  - Pulmonary function test decreased [Unknown]
  - Device breakage [Unknown]
  - Speech disorder [Unknown]

NARRATIVE: CASE EVENT DATE: 2018
